FAERS Safety Report 8112266-5 (Version None)
Quarter: 2012Q1

REPORT INFORMATION
  Report Type: 
  Country: None (occurrence: None)
  Receive Date: 20120203
  Receipt Date: 20111216
  Transmission Date: 20120608
  Serious: No
  Sender: FDA-Public Use
  Company Number: US-ASTRAZENECA-2011SE65936

PATIENT
  Age: 57 Year
  Sex: Male

DRUGS (7)
  1. AMLODIPINE BESYLATE [Concomitant]
  2. AMOXICILLIN [Concomitant]
  3. VENLAFAXINE HCL [Concomitant]
  4. IMODIUM A-D [Concomitant]
  5. WELLBUTRIN [Concomitant]
  6. VANDETANIB [Suspect]
     Indication: THYROID CANCER
     Route: 048
  7. CALCIUM 500 + D [Concomitant]

REACTIONS (7)
  - ORAL PAIN [None]
  - MUSCLE TWITCHING [None]
  - RASH [None]
  - MUSCULAR WEAKNESS [None]
  - CONFUSIONAL STATE [None]
  - DIZZINESS [None]
  - MUSCULOSKELETAL STIFFNESS [None]
